FAERS Safety Report 24559259 (Version 1)
Quarter: 2024Q4

REPORT INFORMATION
  Report Type: Spontaneous
  Country: US (occurrence: US)
  Receive Date: 20241029
  Receipt Date: 20241029
  Transmission Date: 20250115
  Serious: Yes (Life-Threatening, Hospitalization, Other)
  Sender: AUROBINDO
  Company Number: GE-MLMSERVICE-20240903-PI182589-00306-1

PATIENT
  Age: 38 Year
  Sex: Male

DRUGS (14)
  1. MYCOPHENOLIC ACID [Suspect]
     Active Substance: MYCOPHENOLIC ACID
     Indication: Immunosuppressant drug therapy
     Dosage: 750 MILLIGRAM
     Route: 065
     Dates: start: 2021, end: 2022
  2. MYCOPHENOLIC ACID [Suspect]
     Active Substance: MYCOPHENOLIC ACID
     Dosage: 500 MILLIGRAM
     Route: 065
     Dates: start: 2022
  3. PREDNISONE [Suspect]
     Active Substance: PREDNISONE
     Indication: Immunosuppressant drug therapy
     Dosage: 20 MILLIGRAM
     Route: 065
     Dates: start: 2021
  4. PREDNISONE [Suspect]
     Active Substance: PREDNISONE
     Dosage: 5 MILLIGRAM (BY POD 20)
     Route: 065
     Dates: start: 2021
  5. TACROLIMUS [Suspect]
     Active Substance: TACROLIMUS
     Indication: Immunosuppressant drug therapy
     Dosage: UNK
     Route: 065
     Dates: start: 2021
  6. TACROLIMUS [Suspect]
     Active Substance: TACROLIMUS
     Dosage: UNK (TACROLIMUS WAS REDUCED BECAUSE HIS TROUGH LEVELS WERE CONSISTENTLY ELEVATED ABOVE 10 NG/ML, WIT
     Route: 065
     Dates: start: 2022
  7. TACROLIMUS [Suspect]
     Active Substance: TACROLIMUS
     Dosage: 4 MILLIGRAM, ONCE A DAY
     Route: 065
     Dates: start: 2022
  8. SOLU-MEDROL [Suspect]
     Active Substance: METHYLPREDNISOLONE SODIUM SUCCINATE
     Indication: Immunosuppressant drug therapy
     Dosage: 125 MILLIGRAM
     Route: 065
     Dates: end: 2021
  9. SOLU-MEDROL [Suspect]
     Active Substance: METHYLPREDNISOLONE SODIUM SUCCINATE
     Dosage: 250 MILLIGRAM
     Route: 065
  10. SOLU-MEDROL [Suspect]
     Active Substance: METHYLPREDNISOLONE SODIUM SUCCINATE
     Dosage: 500 MILLIGRAM
     Route: 065
     Dates: start: 2021
  11. THYMOGLOBULIN [Suspect]
     Active Substance: LAPINE T-LYMPHOCYTE IMMUNE GLOBULIN
     Indication: Immunosuppressant drug therapy
     Dosage: 1.5 MILLIGRAM/KILOGRAM (1.5 MG/KG X 3 DOSES)
     Route: 065
     Dates: start: 2021, end: 2021
  12. NYSTATIN [Concomitant]
     Active Substance: NYSTATIN
     Indication: Prophylaxis
     Dosage: UNK
     Route: 065
     Dates: start: 2021
  13. SULFAMETHOXAZOLE\TRIMETHOPRIM [Concomitant]
     Active Substance: SULFAMETHOXAZOLE\TRIMETHOPRIM
     Indication: Prophylaxis
     Dosage: UNK
     Route: 065
     Dates: start: 2021
  14. VALGANCICLOVIR [Concomitant]
     Active Substance: VALGANCICLOVIR
     Indication: Prophylaxis
     Dosage: UNK
     Route: 065
     Dates: start: 2021

REACTIONS (4)
  - Diabetic ketoacidosis [Unknown]
  - New onset diabetes after transplantation [Unknown]
  - Drug level above therapeutic [Unknown]
  - Latent autoimmune diabetes in adults [Unknown]

NARRATIVE: CASE EVENT DATE: 20220101
